FAERS Safety Report 9001198 (Version 2)
Quarter: 2013Q1

REPORT INFORMATION
  Report Type: Report from Study
  Country: US (occurrence: US)
  Receive Date: 20130107
  Receipt Date: 20130110
  Transmission Date: 20140127
  Serious: No
  Sender: FDA-Public Use
  Company Number: US-VERTEX PHARMACEUTICALS INC.-2013-000156

PATIENT
  Age: 40 Year
  Sex: Female

DRUGS (9)
  1. VX-950 (TELAPREVIR) [Suspect]
     Indication: HEPATITIS C
     Dosage: 750 MG, TID
     Route: 048
     Dates: start: 20121022, end: 201212
  2. VX-950 (TELAPREVIR) [Suspect]
     Dosage: 750 MG, TID
     Route: 048
  3. VX-950 (TELAPREVIR) [Suspect]
     Dosage: UNK
  4. RIBASPHERE [Suspect]
     Indication: HEPATITIS C
     Dosage: 600 MG, BID
     Route: 048
     Dates: start: 20121022, end: 201212
  5. RIBASPHERE [Suspect]
     Dosage: 600 MG, BID
     Route: 048
  6. PEGASYS [Suspect]
     Indication: HEPATITIS C
     Dosage: 180 ?G, QW
     Route: 058
     Dates: start: 20121022, end: 201212
  7. PEGASYS [Suspect]
     Dosage: 180 ?G, QW
     Route: 058
  8. ADVIL                              /00044201/ [Concomitant]
     Dosage: 200 MG, PRN
  9. GABAPENTIN [Concomitant]

REACTIONS (2)
  - Abscess [Unknown]
  - Arthralgia [Unknown]
